FAERS Safety Report 4885397-0 (Version None)
Quarter: 2005Q4

REPORT INFORMATION
  Report Type: 
  Country: None (occurrence: None)
  Receive Date: 20051220
  Receipt Date: 20041230
  Transmission Date: 20060501
  Serious: Yes (Other)
  Sender: FDA-Public Use
  Company Number: HQWYE369504JAN05

PATIENT
  Sex: Male

DRUGS (1)
  1. EFFEXOR XR [Suspect]
     Dosage: 75 MG 1X PER 1 DAY; 75 MG TWO CAPSULES ONCE DAILY; 150 MG 1X PER 1 DAY

REACTIONS (3)
  - DISORIENTATION [None]
  - DIZZINESS [None]
  - VERTIGO [None]
